FAERS Safety Report 7708403-4 (Version None)
Quarter: 2011Q3

REPORT INFORMATION
  Report Type: 
  Country: None (occurrence: None)
  Receive Date: 20110825
  Receipt Date: 20110816
  Transmission Date: 20111222
  Serious: Yes (Other)
  Sender: FDA-Public Use
  Company Number: CA-ELI_LILLY_AND_COMPANY-CA201108004966

PATIENT
  Sex: Female

DRUGS (8)
  1. ZYPREXA ZYDIS [Suspect]
     Dosage: 10 MG, UNK
  2. LORAZEPAM [Concomitant]
  3. ZYPREXA [Suspect]
     Dosage: 10 MG, UNK
  4. CLONAZEPAM [Concomitant]
  5. PERPHENAZINE [Concomitant]
  6. ASPIRIN [Concomitant]
  7. ZYPREXA [Suspect]
     Indication: SCHIZOAFFECTIVE DISORDER
     Dosage: 25 MG, EACH EVENING
     Dates: start: 20020208
  8. ZYPREXA ZYDIS [Suspect]
     Indication: SCHIZOAFFECTIVE DISORDER
     Dosage: 15 MG, UNK

REACTIONS (8)
  - HYPERTENSION [None]
  - OVERDOSE [None]
  - RENAL IMPAIRMENT [None]
  - MICROALBUMINURIA [None]
  - DYSLIPIDAEMIA [None]
  - TYPE 2 DIABETES MELLITUS [None]
  - ELECTROCARDIOGRAM ABNORMAL [None]
  - WEIGHT INCREASED [None]
